FAERS Safety Report 19013912 (Version 2)
Quarter: 2021Q1

REPORT INFORMATION
  Report Type: Report from Study
  Country: GB (occurrence: GB)
  Receive Date: 20210315
  Receipt Date: 20210322
  Transmission Date: 20210420
  Serious: Yes (Hospitalization, Other)
  Sender: FDA-Public Use
  Company Number: GB-BRISTOL-MYERS SQUIBB COMPANY-BMS-2021-018682

PATIENT
  Age: 7 Year
  Sex: Male
  Weight: 22.35 kg

DRUGS (24)
  1. 131?I MIBG [Suspect]
     Active Substance: IOBENGUANE I-131
     Dosage: STAT
     Route: 065
     Dates: start: 20210127, end: 20210127
  2. MORPHINE [Concomitant]
     Active Substance: MORPHINE
     Indication: PAIN
     Dosage: 2ML/HR
     Route: 042
     Dates: start: 20210211, end: 20210214
  3. FUROSEMIDE. [Concomitant]
     Active Substance: FUROSEMIDE
     Indication: URINE OUTPUT DECREASED
     Dosage: 10 MILLIGRAM, PRN
     Route: 042
     Dates: start: 20210217, end: 20210217
  4. METOCLOPRAMIDE. [Concomitant]
     Active Substance: METOCLOPRAMIDE
     Indication: PRODUCT USED FOR UNKNOWN INDICATION
     Dosage: 3 TO 9MG, PRN
     Route: 042
     Dates: start: 20210214, end: 20210220
  5. NIVOLUMAB [Suspect]
     Active Substance: NIVOLUMAB
     Indication: NEUROBLASTOMA
     Dosage: 65 MILLIGRAM, Q2WK
     Route: 065
     Dates: start: 20210210
  6. PARACETAMOL [Concomitant]
     Active Substance: ACETAMINOPHEN
     Dosage: 220MGX6
     Route: 042
     Dates: start: 20210223, end: 20210226
  7. LACTULOSE. [Concomitant]
     Active Substance: LACTULOSE
     Indication: CONSTIPATION
     Dosage: 10MG, PRN
     Route: 048
     Dates: start: 20210213, end: 20210215
  8. COTRIMOXAZOLE [Concomitant]
     Active Substance: SULFAMETHOXAZOLE\TRIMETHOPRIM
     Indication: PRODUCT USED FOR UNKNOWN INDICATION
     Dosage: 720MG, BID, WEEKENDS
     Route: 048
  9. CHLORPHENAMINE [Concomitant]
     Active Substance: CHLORPHENIRAMINE MALEATE
     Indication: ANAPHYLAXIS PROPHYLAXIS
     Dosage: 5 MILLIGRAM, QID
     Route: 042
     Dates: start: 20210211, end: 20210226
  10. ONDANSETRON [Concomitant]
     Active Substance: ONDANSETRON
     Indication: PRODUCT USED FOR UNKNOWN INDICATION
     Dosage: 2 MILLIGRAM
     Route: 042
     Dates: start: 20210211, end: 20210214
  11. ONDANSETRON [Concomitant]
     Active Substance: ONDANSETRON
     Dosage: 4 MILLIGRAM
     Route: 042
     Dates: start: 20210214, end: 20210226
  12. OXYCODONE [Concomitant]
     Active Substance: OXYCODONE
     Dosage: 2ML PRN
     Route: 040
     Dates: start: 20210214, end: 20210225
  13. IBUPROFEN. [Concomitant]
     Active Substance: IBUPROFEN
     Indication: PAIN
     Dosage: 200MG, PRN
     Route: 048
     Dates: start: 20210222, end: 20210224
  14. GABAPENTIN. [Concomitant]
     Active Substance: GABAPENTIN
     Indication: PAIN
     Dosage: 300 MILLIGRAM, TID
     Route: 048
     Dates: start: 20210202, end: 20210224
  15. CHLORPHENAMINE [Concomitant]
     Active Substance: CHLORPHENIRAMINE MALEATE
     Indication: ANAPHYLAXIS PROPHYLAXIS
     Dosage: 2 MILLIGRAM, PRN
     Route: 048
     Dates: start: 20210226
  16. 131?I MIBG [Suspect]
     Active Substance: IOBENGUANE I-131
     Indication: NEUROBLASTOMA
     Dosage: STAT
     Route: 065
     Dates: start: 20210113, end: 20210113
  17. CETRIZINE [Concomitant]
     Active Substance: CETIRIZINE HYDROCHLORIDE
     Indication: ANAPHYLAXIS PROPHYLAXIS
     Dosage: 5 MILLIGRAM
     Route: 048
     Dates: start: 20210211, end: 20210227
  18. OMEPRAZOLE. [Concomitant]
     Active Substance: OMEPRAZOLE
     Indication: PROPHYLAXIS
     Dosage: 20 MILLIGRAM, QD
     Route: 048
     Dates: start: 20210217
  19. HYDROCORTISONE. [Concomitant]
     Active Substance: HYDROCORTISONE
     Indication: RASH
     Dosage: 2 APPLICATIONS, BID
     Route: 061
     Dates: start: 20210222
  20. DINUTUXIMAB BETA [Suspect]
     Active Substance: DINUTUXIMAB BETA
     Indication: NEUROBLASTOMA
     Dosage: 4.05MG, 10 DAY INFUSION
     Route: 065
     Dates: start: 20210211, end: 20210221
  21. MORPHINE [Concomitant]
     Active Substance: MORPHINE
     Dosage: 2ML, PRN
     Route: 040
     Dates: start: 20210211, end: 20210214
  22. PARACETAMOL [Concomitant]
     Active Substance: ACETAMINOPHEN
     Indication: PAIN
     Dosage: 330MG QDS
     Route: 042
     Dates: start: 20210211, end: 20210223
  23. OXYCODONE [Concomitant]
     Active Substance: OXYCODONE
     Indication: PAIN
     Dosage: 2ML/HR
     Route: 042
     Dates: start: 20210214, end: 20210225
  24. GABAPENTIN. [Concomitant]
     Active Substance: GABAPENTIN
     Dosage: 300/350MG OD
     Route: 048
     Dates: start: 20210224

REACTIONS (2)
  - Pain [Recovered/Resolved]
  - Pyrexia [Recovered/Resolved]

NARRATIVE: CASE EVENT DATE: 20210221
